FAERS Safety Report 7670790-3 (Version None)
Quarter: 2011Q3

REPORT INFORMATION
  Report Type: 
  Country: None (occurrence: None)
  Receive Date: 20110809
  Receipt Date: 20110727
  Transmission Date: 20111222
  Serious: Yes (Other)
  Sender: FDA-Public Use
  Company Number: US-JNJFOC-20110801818

PATIENT
  Sex: Male
  Weight: 70.31 kg

DRUGS (3)
  1. LEVAQUIN [Suspect]
     Indication: NIGHT SWEATS
     Route: 048
     Dates: start: 20100701, end: 20100101
  2. MICARDIS [Concomitant]
     Indication: BLOOD PRESSURE
     Dosage: ONCE NIGHTLY
     Route: 048
  3. LEVAQUIN [Suspect]
     Indication: PYREXIA
     Route: 048
     Dates: start: 20100701, end: 20100101

REACTIONS (6)
  - ARTHRITIS [None]
  - RASH PRURITIC [None]
  - LYME DISEASE [None]
  - PAIN [None]
  - ARTHRALGIA [None]
  - PROTEIN TOTAL ABNORMAL [None]
